FAERS Safety Report 8268554 (Version 3)
Quarter: 2014Q1

REPORT INFORMATION
  Report Type: Spontaneous
  Country: US (occurrence: US)
  Receive Date: 20111130
  Receipt Date: 20140206
  Transmission Date: 20141002
  Serious: Yes (Hospitalization)
  Sender: FDA-Public Use
  Company Number: US-JNJFOC-20111110574

PATIENT
  Age: 55 Year
  Sex: Female
  Weight: 115.21 kg

DRUGS (17)
  1. DURAGESIC [Suspect]
     Indication: FATIGUE
     Route: 062
     Dates: start: 201107, end: 201108
  2. DURAGESIC [Suspect]
     Indication: FATIGUE
     Route: 062
     Dates: start: 201108, end: 20111109
  3. DURAGESIC [Suspect]
     Indication: BACK PAIN
     Route: 062
     Dates: start: 201107, end: 201108
  4. DURAGESIC [Suspect]
     Indication: BACK PAIN
     Route: 062
     Dates: start: 201108, end: 20111109
  5. DURAGESIC [Suspect]
     Indication: FIBROMYALGIA
     Route: 062
     Dates: start: 201108, end: 20111109
  6. DURAGESIC [Suspect]
     Indication: FIBROMYALGIA
     Route: 062
     Dates: start: 201107, end: 201108
  7. DURAGESIC [Suspect]
     Indication: FATIGUE
     Route: 062
     Dates: start: 20111109, end: 20111122
  8. DURAGESIC [Suspect]
     Indication: FATIGUE
     Route: 062
     Dates: start: 20111122
  9. DURAGESIC [Suspect]
     Indication: BACK PAIN
     Route: 062
     Dates: start: 20111109, end: 20111122
  10. DURAGESIC [Suspect]
     Indication: BACK PAIN
     Route: 062
     Dates: start: 20111122
  11. DURAGESIC [Suspect]
     Indication: FIBROMYALGIA
     Route: 062
     Dates: start: 20111109, end: 20111122
  12. DURAGESIC [Suspect]
     Indication: FIBROMYALGIA
     Route: 062
     Dates: start: 20111122
  13. BENICAR [Concomitant]
     Indication: BLOOD PRESSURE
     Route: 048
     Dates: start: 2011
  14. JANUMET [Concomitant]
     Indication: DIABETES MELLITUS
     Route: 065
     Dates: start: 2010
  15. JANUMET [Concomitant]
     Indication: DIABETES MELLITUS
     Route: 065
     Dates: start: 201110
  16. ACIPHEX [Concomitant]
     Indication: GASTROOESOPHAGEAL REFLUX DISEASE
     Route: 048
     Dates: start: 2006
  17. ZOLPIDEM [Concomitant]
     Indication: SLEEP DISORDER THERAPY
     Route: 048
     Dates: start: 2006

REACTIONS (6)
  - Investigation [Unknown]
  - Adverse event [Unknown]
  - Drug ineffective [Not Recovered/Not Resolved]
  - Drug effect decreased [Recovering/Resolving]
  - Drug administered at inappropriate site [Not Recovered/Not Resolved]
  - Product adhesion issue [Unknown]
